FAERS Safety Report 25881164 (Version 2)
Quarter: 2025Q4

REPORT INFORMATION
  Report Type: Spontaneous
  Country: EU (occurrence: EU)
  Receive Date: 20251004
  Receipt Date: 20251011
  Transmission Date: 20260118
  Serious: Yes (Disabling, Other)
  Sender: ABBVIE
  Company Number: EU-LUNDBECK-DKLU4019814

PATIENT
  Age: 66 Year
  Weight: 125 kg

DRUGS (9)
  1. CIPRALEX [Suspect]
     Active Substance: ESCITALOPRAM OXALATE
     Indication: Libido disorder
     Dosage: 20 MILLIGRAM
     Route: 048
  2. FLUTICASONE FUROATE\UMECLIDINIUM BROMIDE\VILANTEROL TRIFENATATE [Concomitant]
     Active Substance: FLUTICASONE FUROATE\UMECLIDINIUM BROMIDE\VILANTEROL TRIFENATATE
     Indication: Product used for unknown indication
     Dosage: 1 DOSAGE FORM
  3. ATORVASTATIN [Concomitant]
     Active Substance: ATORVASTATIN
     Indication: Hypercholesterolaemia
     Dosage: FORM STRENGTH: 40 MILLIGRAM
  4. GINKGO [Concomitant]
     Active Substance: GINKGO
     Indication: Memory impairment
     Dosage: 120 MILLIGRAM
  5. QUETIAPINE [Concomitant]
     Active Substance: QUETIAPINE
     Indication: Restlessness
     Dosage: 1 TABLET IN THE MORNING AND 2 TABLETS AT NIGHT?FORM STRENGTH: 300 MILLIGRAM
  6. ZOPICLONE [Concomitant]
     Active Substance: ZOPICLONE
     Indication: Sleep disorder
     Dosage: 7.5 MILLIGRAM
  7. CHOLECALCIFEROL [Concomitant]
     Active Substance: CHOLECALCIFEROL
     Indication: Vitamin D deficiency
     Dosage: 20 INTERNATIONAL UNIT
  8. ASPIRIN [Concomitant]
     Active Substance: ASPIRIN
     Indication: Bundle branch block right
     Dosage: 1 DOSAGE FORM?FORM STRENGTH: 100, UNITS UNKNOWN
  9. METFORMIN [Concomitant]
     Active Substance: METFORMIN HYDROCHLORIDE
     Indication: Blood glucose increased
     Dosage: 1000 MILLIGRAM

REACTIONS (14)
  - Lung diffusion disorder [Unknown]
  - Bronchitis chronic [Unknown]
  - Spinal stenosis [Unknown]
  - Behaviour disorder [Unknown]
  - Condition aggravated [Unknown]
  - Product use in unapproved indication [Unknown]
  - Visual impairment [Unknown]
  - Intervertebral disc disorder [Unknown]
  - Hypoxia [Unknown]
  - Spinal cord disorder [Unknown]
  - Pulmonary function test decreased [Unknown]
  - Infectious pleural effusion [Unknown]
  - Mental disorder [Unknown]
  - Pain [Unknown]
